FAERS Safety Report 5305122-9 (Version None)
Quarter: 2007Q2

REPORT INFORMATION
  Report Type: 
  Country: None (occurrence: None)
  Receive Date: 20070423
  Receipt Date: 20070423
  Transmission Date: 20071010
  Serious: Yes (Death, Other)
  Sender: FDA-Public Use
  Company Number: US-BRISTOL-MYERS SQUIBB COMPANY-13746854

PATIENT
  Age: 45 Year
  Sex: Male

DRUGS (11)
  1. CARBOPLATIN [Suspect]
     Indication: NON-SMALL CELL LUNG CANCER
     Route: 042
     Dates: start: 20070321, end: 20070321
  2. PACLITAXEL [Suspect]
     Indication: NON-SMALL CELL LUNG CANCER
     Route: 042
     Dates: start: 20070321, end: 20070321
  3. BLINDED: PLACEBO [Suspect]
     Indication: NON-SMALL CELL LUNG CANCER
     Route: 048
     Dates: start: 20070209
  4. BLINDED: SORAFENIB [Suspect]
     Indication: NON-SMALL CELL LUNG CANCER
     Route: 048
     Dates: start: 20070209
  5. ASPIRIN [Concomitant]
     Indication: PROPHYLAXIS
     Route: 048
     Dates: start: 20040101
  6. SENOKOT [Concomitant]
     Indication: CONSTIPATION
     Route: 048
     Dates: start: 20070214
  7. CLEOCIN HYDROCHLORIDE [Concomitant]
     Indication: INFECTION
     Route: 048
     Dates: start: 20070322, end: 20070404
  8. AMBIEN [Concomitant]
     Indication: INSOMNIA
     Route: 048
     Dates: start: 20070322
  9. GUAIFENESIN [Concomitant]
     Indication: COUGH
     Route: 048
     Dates: start: 20070312
  10. MUCINEX [Concomitant]
     Indication: COUGH
     Route: 048
     Dates: start: 20070321
  11. GANODERMA LUCIDUM [Concomitant]
     Indication: VITAMIN SUPPLEMENTATION
     Route: 048

REACTIONS (2)
  - CARDIAC ARREST [None]
  - PULMONARY HAEMORRHAGE [None]
